FAERS Safety Report 9674674 (Version 2)
Quarter: 2013Q4

REPORT INFORMATION
  Report Type: Spontaneous
  Country: US (occurrence: US)
  Receive Date: 20131107
  Receipt Date: 20131107
  Transmission Date: 20140711
  Serious: Yes (Hospitalization, Other)
  Sender: FDA-Public Use
  Company Number: US-ASTRAZENECA-2011SE01022

PATIENT
  Age: 58 Year
  Sex: Female
  Weight: 61.7 kg

DRUGS (10)
  1. NEXIUM [Suspect]
     Indication: GASTROOESOPHAGEAL REFLUX DISEASE
     Route: 048
     Dates: start: 2009, end: 201306
  2. SYMBICORT PMDI [Suspect]
     Indication: CHRONIC OBSTRUCTIVE PULMONARY DISEASE
     Dosage: 160/4.5MG 2 PUFFS BID
     Route: 055
     Dates: start: 201304
  3. LISINOPRIL [Suspect]
     Indication: BLOOD PRESSURE ABNORMAL
     Dosage: 20-25 MG DAILY
     Route: 048
     Dates: start: 2007
  4. LORAZEPAM [Concomitant]
     Indication: ANXIETY
     Route: 048
     Dates: start: 2007
  5. POTASSIUM [Concomitant]
     Indication: BLOOD POTASSIUM DECREASED
     Route: 048
     Dates: start: 2010
  6. SINGULAIR [Concomitant]
     Indication: MULTIPLE ALLERGIES
     Route: 048
     Dates: start: 2011
  7. PRO AIR [Concomitant]
     Indication: CHRONIC OBSTRUCTIVE PULMONARY DISEASE
     Dosage: UNKNOWN PRN
     Route: 055
     Dates: start: 201304
  8. SPIRIVA [Concomitant]
     Indication: CHRONIC OBSTRUCTIVE PULMONARY DISEASE
     Dosage: UNKNOWN DAILY
     Route: 055
     Dates: start: 201304
  9. NORCO [Concomitant]
     Indication: PAIN
     Dosage: 5/325MG PRN
     Route: 048
     Dates: start: 2011
  10. VITAMIN D [Concomitant]
     Indication: VITAMIN D DECREASED
     Dosage: UNKNOWN PRN
     Route: 048
     Dates: start: 2010

REACTIONS (16)
  - Gastrooesophageal reflux disease [Unknown]
  - Arteriosclerosis [Unknown]
  - Transient ischaemic attack [Unknown]
  - Aphagia [Unknown]
  - Dyspepsia [Unknown]
  - Weight decreased [Unknown]
  - Condition aggravated [Unknown]
  - Dementia [Unknown]
  - Adverse event [Unknown]
  - Choking sensation [Unknown]
  - Chest discomfort [Unknown]
  - Sleep disorder due to general medical condition, insomnia type [Unknown]
  - Vomiting [Unknown]
  - Intentional drug misuse [Unknown]
  - Drug dose omission [Unknown]
  - Off label use [Recovered/Resolved]
